FAERS Safety Report 6372212-1 (Version None)
Quarter: 2009Q3

REPORT INFORMATION
  Report Type: 
  Country: None (occurrence: None)
  Receive Date: 20090924
  Receipt Date: 20090918
  Transmission Date: 20100115
  Serious: Yes (Hospitalization)
  Sender: FDA-Public Use
  Company Number: US-BIOGENIDEC-2009BI023928

PATIENT
  Sex: Female
  Weight: 70 kg

DRUGS (13)
  1. TYSABRI [Suspect]
     Indication: MULTIPLE SCLEROSIS
     Route: 042
     Dates: start: 20080509, end: 20090528
  2. PRISTIQ [Concomitant]
  3. ACETAMINOPHEN [Concomitant]
  4. INDOMETHACIN [Concomitant]
  5. LIDOCAINE [Concomitant]
     Route: 062
  6. TOPROL-XL [Concomitant]
  7. KLONOPIN [Concomitant]
  8. PRILOSEC [Concomitant]
  9. MIRALAX [Concomitant]
  10. DETROL LA [Concomitant]
  11. SALIVA SUBSTITUTE [Concomitant]
  12. VITAMIN B-12 [Concomitant]
  13. RECLAST [Concomitant]

REACTIONS (2)
  - INFUSION SITE RASH [None]
  - PARKINSON'S DISEASE [None]
